FAERS Safety Report 4677300-3 (Version None)
Quarter: 2005Q2

REPORT INFORMATION
  Report Type: 
  Country: None (occurrence: None)
  Receive Date: 20050526
  Receipt Date: 20050511
  Transmission Date: 20051028
  Serious: Yes (Other)
  Sender: FDA-Public Use
  Company Number: US134581

PATIENT
  Sex: Female

DRUGS (3)
  1. ETANERCEPT [Suspect]
     Indication: RHEUMATOID ARTHRITIS
     Dosage: 25 MG, 2 IN 1 WEEKS, SC
     Route: 058
  2. PREDNISONE TAB [Concomitant]
  3. METHOTREXATE [Concomitant]

REACTIONS (5)
  - GRANULOMA [None]
  - LUNG DISORDER [None]
  - LUNG INFILTRATION [None]
  - LYMPHOHISTIOCYTOSIS [None]
  - THERAPY NON-RESPONDER [None]
